FAERS Safety Report 4415205-3 (Version None)
Quarter: 2004Q3

REPORT INFORMATION
  Report Type: 
  Country: None (occurrence: None)
  Receive Date: 20040802
  Receipt Date: 20040726
  Transmission Date: 20050211
  Serious: Yes (Other)
  Sender: FDA-Public Use
  Company Number: 04-07-1074

PATIENT
  Age: 43 Year
  Sex: Female

DRUGS (1)
  1. CLOZAPINE [Suspect]
     Dosage: 700MG QD ORAL
     Route: 048
     Dates: start: 19980401

REACTIONS (2)
  - BRAIN NEOPLASM [None]
  - CARCINOMA [None]
